FAERS Safety Report 8891067 (Version 1)
Quarter: 2012Q4

REPORT INFORMATION
  Report Type: 
  Country: DE (occurrence: JP)
  Receive Date: 20121107
  Receipt Date: 20121107
  Transmission Date: 20130627
  Serious: Yes (Hospitalization)
  Sender: FDA-Public Use
  Company Number: JP-BRISTOL-MYERS SQUIBB COMPANY-17092438

PATIENT
  Age: 54 Year
  Sex: Female

DRUGS (3)
  1. ERBITUX SOLN FOR INF 5MG/ML [Suspect]
     Indication: RECTAL CANCER
     Route: 041
     Dates: start: 20110620, end: 20110802
  2. IRINOTECAN [Concomitant]
     Indication: RECTAL CANCER
     Route: 041
     Dates: start: 20110627, end: 20110719
  3. TS-1 [Concomitant]
     Indication: RECTAL CANCER
     Dosage: 1 week cessation after 2 weeks of adminstration (120mg,1 in 1 once).
     Route: 048
     Dates: start: 20110627, end: 20110809

REACTIONS (2)
  - Female genital tract fistula [Recovered/Resolved]
  - Proctalgia [Recovered/Resolved]
